FAERS Safety Report 25287404 (Version 1)
Quarter: 2025Q2

REPORT INFORMATION
  Report Type: Spontaneous
  Country: US (occurrence: US)
  Receive Date: 20250509
  Receipt Date: 20250509
  Transmission Date: 20250717
  Serious: Yes (Hospitalization)
  Sender: UROGEN PHARMA
  Company Number: US-UROGEN PHARMA LTD.-2025-UGN-000074

PATIENT

DRUGS (4)
  1. JELMYTO [Suspect]
     Active Substance: MITOMYCIN
     Indication: Product used for unknown indication
     Dosage: UNK, ONCE A WEEK (INSTILLATION)
     Route: 065
     Dates: start: 20250326, end: 20250326
  2. JELMYTO [Suspect]
     Active Substance: MITOMYCIN
     Dosage: UNK, ONCE A WEEK (INSTILLATION)
     Route: 065
     Dates: start: 20250402, end: 20250402
  3. JELMYTO [Suspect]
     Active Substance: MITOMYCIN
     Dosage: UNK, ONCE A WEEK (INSTILLATION)
     Route: 065
     Dates: start: 20250409, end: 20250409
  4. JELMYTO [Suspect]
     Active Substance: MITOMYCIN
     Dosage: UNK, ONCE A WEEK (INSTILLATION)
     Route: 065
     Dates: start: 20250416, end: 20250416

REACTIONS (1)
  - Influenza like illness [Unknown]
